FAERS Safety Report 22343666 (Version 1)
Quarter: 2023Q2

REPORT INFORMATION
  Report Type: Spontaneous
  Country: NL (occurrence: NL)
  Receive Date: 20230519
  Receipt Date: 20230519
  Transmission Date: 20230722
  Serious: Yes (Death)
  Sender: FDA-Public Use
  Company Number: NL-LRB-00870793

PATIENT
  Sex: Female
  Weight: 74 kg

DRUGS (5)
  1. GEMCITABINE [Suspect]
     Active Substance: GEMCITABINE
     Indication: Transitional cell carcinoma
     Dosage: ACCORDING TO SCHEDULE ONCOLOGIST
     Route: 065
     Dates: start: 20230302, end: 20230308
  2. CISPLATIN [Suspect]
     Active Substance: CISPLATIN
     Indication: Transitional cell carcinoma
     Dosage: ACCORDING TO SCHEDULE ONCOLOGIST
     Route: 065
     Dates: start: 20230302, end: 20230308
  3. ROSUVASTATINE TABLET  5MG / Brand name not specified [Concomitant]
     Indication: Product used for unknown indication
     Dosage: 5 MILLIGRAM, TABLET
     Route: 065
  4. PERINDOPRIL/INDAPAMIDE TABLET  4/1,25MG (ERBUMINE) / COMARANIL TABLET [Concomitant]
     Indication: Product used for unknown indication
     Dosage: TABLET, 4/1,25 MILLIGRAM
     Route: 065
  5. MACROGOL/ZOUTEN PDR V DRANK (MOVIC/MOLAX/LAXT/GEN) / MOVICOLON POEDER [Concomitant]
     Indication: Product used for unknown indication
     Dosage: POWDER FOR DRINK
     Route: 065

REACTIONS (1)
  - Cerebrovascular accident [Fatal]
